FAERS Safety Report 18586079 (Version 1)
Quarter: 2020Q4

REPORT INFORMATION
  Report Type: Spontaneous
  Country: US (occurrence: US)
  Receive Date: 20201204
  Receipt Date: 20201204
  Transmission Date: 20210114
  Serious: No
  Sender: FDA-Public Use
  Company Number: None

PATIENT
  Age: 73 Year
  Sex: Female
  Weight: 72.57 kg

DRUGS (1)
  1. RASUVO [Suspect]
     Active Substance: METHOTREXATE SODIUM
     Indication: RHEUMATOID ARTHRITIS
     Dosage: INJECT 20MG (0.4ML) SUBCUTANEOUSLY  ONCE WEEKLY ON THE SAME DAY EACH WEEK  AS DIRECTED
     Route: 058
     Dates: start: 201910

REACTIONS (1)
  - Knee arthroplasty [None]
